FAERS Safety Report 17877720 (Version 8)
Quarter: 2022Q3

REPORT INFORMATION
  Report Type: Report from Study
  Country: AU (occurrence: AU)
  Receive Date: 20200609
  Receipt Date: 20220912
  Transmission Date: 20221027
  Serious: Yes (Hospitalization, Other)
  Sender: FDA-Public Use
  Company Number: AU-TAKEDA-2019TUS046723

PATIENT
  Age: 65 Year
  Sex: Female

DRUGS (2)
  1. VEDOLIZUMAB [Suspect]
     Active Substance: VEDOLIZUMAB
     Indication: Colitis ulcerative
     Dosage: 300 MILLIGRAM
     Route: 042
  2. VEDOLIZUMAB [Suspect]
     Active Substance: VEDOLIZUMAB
     Dosage: 300 MILLIGRAM, Q4WEEKS
     Route: 042
     Dates: start: 201907

REACTIONS (8)
  - Appendicectomy [Unknown]
  - Hepatotoxicity [Unknown]
  - Colitis ulcerative [Unknown]
  - Neutrophil count decreased [Unknown]
  - Loss of therapeutic response [Unknown]
  - Infusion related reaction [Recovered/Resolved]
  - Exfoliative rash [Unknown]
  - Rash [Unknown]

NARRATIVE: CASE EVENT DATE: 20200101
